FAERS Safety Report 4280604-X (Version None)
Quarter: 2004Q1

REPORT INFORMATION
  Report Type: 
  Country: None (occurrence: None)
  Receive Date: 20040127
  Receipt Date: 20040119
  Transmission Date: 20041129
  Serious: Yes (Hospitalization, Other)
  Sender: FDA-Public Use
  Company Number: 2003119089

PATIENT
  Sex: Male

DRUGS (6)
  1. DILANTIN KAPSEAL [Suspect]
     Indication: CONVULSION
     Dosage: 400 MG DAILY ORAL
     Route: 048
     Dates: start: 19950101
  2. FLUOXETINE HCL [Suspect]
     Indication: ILL-DEFINED DISORDER
  3. PAROXETINE HCL [Suspect]
     Indication: ANXIETY
  4. PAROXETINE HCL [Suspect]
     Indication: DEPRESSION
  5. PAROXETINE HCL [Suspect]
     Indication: INSOMNIA
  6. PAROXETINE HCL [Suspect]
     Indication: RESTLESSNESS

REACTIONS (15)
  - ANXIETY [None]
  - BACK PAIN [None]
  - CONVULSION [None]
  - DEPRESSION [None]
  - DISEASE RECURRENCE [None]
  - DRUG EFFECT DECREASED [None]
  - DRUG INTERACTION [None]
  - EPHELIDES [None]
  - GRAND MAL CONVULSION [None]
  - INSOMNIA [None]
  - LIVER DISORDER [None]
  - PAIN [None]
  - RASH [None]
  - RESTLESSNESS [None]
  - WEIGHT INCREASED [None]
